FAERS Safety Report 9205104 (Version 1)
Quarter: 2013Q2

REPORT INFORMATION
  Report Type: Report from Study
  Country: US (occurrence: US)
  Receive Date: 20130402
  Receipt Date: 20130402
  Transmission Date: 20140414
  Serious: Yes (Hospitalization)
  Sender: FDA-Public Use
  Company Number: US-US-EMD SERONO, INC.-7202240

PATIENT
  Age: 48 Year
  Sex: Male

DRUGS (1)
  1. REBIF [Suspect]
     Indication: PRODUCT USED FOR UNKNOWN INDICATION
     Dates: start: 20050509, end: 201212

REACTIONS (4)
  - Staphylococcal infection [Recovered/Resolved]
  - Tremor [Unknown]
  - Drug hypersensitivity [Unknown]
  - Asthenia [Unknown]
